FAERS Safety Report 8479852-4 (Version None)
Quarter: 2012Q2

REPORT INFORMATION
  Report Type: 
  Country: None (occurrence: None)
  Receive Date: 20120619
  Receipt Date: 20120323
  Transmission Date: 20120825
  Serious: Yes (Other)
  Sender: FDA-Public Use
  Company Number: 202258

PATIENT
  Age: 65 Year
  Sex: Female

DRUGS (12)
  1. PEGINTERFERON ALFA-2A [Suspect]
     Indication: PRODUCT USED FOR UNKNOWN INDICATION
     Dosage: QW;SC
     Route: 058
  2. RYTHMOL [Suspect]
     Indication: PRODUCT USED FOR UNKNOWN INDICATION
     Dosage: 325 MG;BID;PO
     Route: 048
  3. TOPROL-XL [Suspect]
     Indication: PRODUCT USED FOR UNKNOWN INDICATION
     Dosage: 50 MG;QD;PO 25 MG;QD;PO
     Route: 048
  4. RIBAVIRIN [Suspect]
     Indication: PRODUCT USED FOR UNKNOWN INDICATION
     Dosage: 600 MG;BID;PO
     Route: 048
  5. NUVIGIL [Suspect]
     Indication: PRODUCT USED FOR UNKNOWN INDICATION
     Dosage: 50 MG;QD;PO
     Route: 048
  6. METOCLOPRAMIDE HYDROCHLORIDE [Concomitant]
  7. VICTRELIS [Suspect]
     Indication: PRODUCT USED FOR UNKNOWN INDICATION
     Dosage: 800 MG;TID;PO
     Route: 048
  8. COZAAR [Suspect]
     Indication: PRODUCT USED FOR UNKNOWN INDICATION
     Dosage: 50 MG;QD;PO
     Route: 048
  9. ZOFRAN [Suspect]
     Indication: PRODUCT USED FOR UNKNOWN INDICATION
     Dosage: 8 MG;PRN;PO
     Route: 048
  10. PRADAXA [Suspect]
     Indication: PRODUCT USED FOR UNKNOWN INDICATION
     Dosage: 150 MG;BID;PO 75 MG;QD;PO
     Route: 048
  11. ASPIRIN [Suspect]
     Indication: PRODUCT USED FOR UNKNOWN INDICATION
     Dosage: 81 MG;QD;PO
     Route: 048
  12. REGLAN [Concomitant]

REACTIONS (34)
  - BLOOD URINE PRESENT [None]
  - HAEMORRHOIDS [None]
  - POOR QUALITY DRUG ADMINISTERED [None]
  - DRY EYE [None]
  - DYSGEUSIA [None]
  - HYPOPHAGIA [None]
  - DISEASE RECURRENCE [None]
  - UNDERDOSE [None]
  - ANAEMIA [None]
  - PHOTOPHOBIA [None]
  - TREATMENT NONCOMPLIANCE [None]
  - HAEMORRHOIDAL HAEMORRHAGE [None]
  - STOMATITIS [None]
  - NAUSEA [None]
  - ASTHENIA [None]
  - TRANSAMINASES INCREASED [None]
  - PRURITUS [None]
  - BLOOD GLUCOSE DECREASED [None]
  - TABLET PHYSICAL ISSUE [None]
  - LEUKOPENIA [None]
  - SOMNOLENCE [None]
  - DYSPHAGIA [None]
  - UPPER-AIRWAY COUGH SYNDROME [None]
  - EYE PAIN [None]
  - VULVOVAGINAL PAIN [None]
  - BLOOD BILIRUBIN INCREASED [None]
  - DYSURIA [None]
  - ALOPECIA [None]
  - FEELING ABNORMAL [None]
  - EYE IRRITATION [None]
  - WEIGHT DECREASED [None]
  - SINUSITIS [None]
  - PRODUCT PACKAGING ISSUE [None]
  - WRONG TECHNIQUE IN DRUG USAGE PROCESS [None]
